FAERS Safety Report 4297116-X (Version None)
Quarter: 2004Q1

REPORT INFORMATION
  Report Type: 
  Country: None (occurrence: None)
  Receive Date: 20040213
  Receipt Date: 20040203
  Transmission Date: 20041129
  Serious: Yes (Hospitalization, Other)
  Sender: FDA-Public Use
  Company Number: 2003122908

PATIENT
  Sex: Female
  Weight: 61.2356 kg

DRUGS (2)
  1. DILANTIN KAPSEAL [Suspect]
     Indication: PARTIAL SEIZURES
     Dosage: 400 MG (QID), ORAL
     Route: 048
     Dates: start: 19990101, end: 19990101
  2. DILANTIN KAPSEAL [Suspect]
     Indication: PARTIAL SEIZURES
     Dosage: 400 MG (QID), ORAL
     Route: 048
     Dates: start: 19970101

REACTIONS (11)
  - ANXIETY [None]
  - AURA [None]
  - BLOOD PRESSURE INCREASED [None]
  - CONDITION AGGRAVATED [None]
  - CONVULSION [None]
  - DRUG EFFECT DECREASED [None]
  - FEELING HOT [None]
  - GINGIVAL HYPERPLASIA [None]
  - PARTIAL SEIZURES [None]
  - PREGNANCY [None]
  - TREMOR [None]
